FAERS Safety Report 8431940-4 (Version None)
Quarter: 2012Q2

REPORT INFORMATION
  Report Type: 
  Country: None (occurrence: None)
  Receive Date: 20120613
  Receipt Date: 20110930
  Transmission Date: 20120825
  Serious: No
  Sender: FDA-Public Use
  Company Number: US-ASTRAZENECA-2011SE59408

PATIENT
  Age: 61 Year
  Sex: Male

DRUGS (3)
  1. VIMOVO [Suspect]
     Route: 048
  2. RHINOCORT [Suspect]
     Route: 045
  3. CRESTOR [Suspect]
     Route: 048

REACTIONS (6)
  - PAIN [None]
  - JOINT INJURY [None]
  - IMPAIRED HEALING [None]
  - ABASIA [None]
  - MENISCUS LESION [None]
  - INFLAMMATION [None]
